FAERS Safety Report 9548641 (Version 2)
Quarter: 2013Q4

REPORT INFORMATION
  Report Type: Spontaneous
  Country: US (occurrence: None)
  Receive Date: 20130919
  Receipt Date: 20131031
  Transmission Date: 20140711
  Serious: Yes (Hospitalization)
  Sender: FDA-Public Use
  Company Number: 2013AP008004

PATIENT
  Age: 59 Year
  Sex: 0

DRUGS (4)
  1. CANDESARTAN W/HYDROCHLOROTHIAZIDE [Suspect]
     Indication: MYOCARDIAL INFARCTION
     Dates: start: 20130511
  2. PLAVIX [Concomitant]
  3. LIPITOR [Concomitant]
  4. METOPROLOL [Concomitant]

REACTIONS (14)
  - Abdominal pain upper [None]
  - Chest pain [None]
  - Pain in jaw [None]
  - Heart rate increased [None]
  - Cold sweat [None]
  - Headache [None]
  - Head injury [None]
  - Vomiting [None]
  - Pallor [None]
  - Foaming at mouth [None]
  - Syncope [None]
  - Feeling cold [None]
  - Yellow skin [None]
  - Gaze palsy [None]
